FAERS Safety Report 5817735-6 (Version None)
Quarter: 2008Q3

REPORT INFORMATION
  Report Type: 
  Country: None (occurrence: None)
  Receive Date: 20080716
  Receipt Date: 20080702
  Transmission Date: 20090109
  Serious: Yes (Hospitalization)
  Sender: FDA-Public Use
  Company Number: ENTC2008-0198

PATIENT

DRUGS (5)
  1. STALEVO 100 [Suspect]
     Indication: PARKINSON'S DISEASE
     Dosage: 5/ 1 DAYS, ORAL
     Route: 048
     Dates: start: 20050401, end: 20080601
  2. ALFUZOSIN HCL [Concomitant]
  3. OMEPRAZOLE [Concomitant]
  4. PRAMIPPXOLE [Concomitant]
  5. TOLTERODINE TARTRATE [Concomitant]

REACTIONS (2)
  - APPETITE DISORDER [None]
  - TOOTH LOSS [None]
